FAERS Safety Report 13400251 (Version 1)
Quarter: 2017Q2

REPORT INFORMATION
  Report Type: Spontaneous
  Country: US (occurrence: US)
  Receive Date: 20170404
  Receipt Date: 20170404
  Transmission Date: 20170830
  Serious: No
  Sender: FDA-Public Use
  Company Number: US-ORION CORPORATION ORION PHARMA-ENT 2016-0072

PATIENT
  Sex: Female

DRUGS (2)
  1. ENTACAPONE TABLETS [Suspect]
     Active Substance: ENTACAPONE
     Route: 065
     Dates: start: 20160330
  2. NORTHERA [Suspect]
     Active Substance: DROXIDOPA
     Dosage: STRENGTH: 100 MG
     Route: 065
     Dates: start: 20160330

REACTIONS (1)
  - Malaise [Unknown]

NARRATIVE: CASE EVENT DATE: 2016
